FAERS Safety Report 6784883-6 (Version None)
Quarter: 2010Q2

REPORT INFORMATION
  Report Type: 
  Country: None (occurrence: None)
  Receive Date: 20100618
  Receipt Date: 20100601
  Transmission Date: 20101027
  Serious: Yes (Other)
  Sender: FDA-Public Use
  Company Number: 1022556-2010-00035

PATIENT
  Age: 34 Year
  Sex: Male
  Weight: 131.5431 kg

DRUGS (9)
  1. ICY HOT POWDER GEL 1.75 OZ [Suspect]
     Indication: BACK PAIN
     Dosage: TOPICAL/ONCE
     Route: 061
  2. DIAZEPAM [Concomitant]
  3. MICOZIDE [Concomitant]
  4. LIPITOR [Concomitant]
  5. CLARITIN [Concomitant]
  6. CINGULAR [Concomitant]
  7. COREGG [Concomitant]
  8. NICOTINE [Concomitant]
  9. GENERIC 1% MENTHOL 15% SALICYLATE MUSCLE RUB [Concomitant]

REACTIONS (2)
  - APPLICATION SITE BURN [None]
  - APPLICATION SITE PAIN [None]
